FAERS Safety Report 21778135 (Version 1)
Quarter: 2022Q4

REPORT INFORMATION
  Report Type: Other
  Country: NL (occurrence: NL)
  Receive Date: 20221226
  Receipt Date: 20221226
  Transmission Date: 20230113
  Serious: Yes (Hospitalization)
  Sender: FDA-Public Use
  Company Number: NL-MYLANLABS-2022M1139545

PATIENT
  Sex: Male

DRUGS (8)
  1. RITUXIMAB [Suspect]
     Active Substance: RITUXIMAB
     Indication: Autoinflammatory disease
     Dosage: UNK (1 X 375 MG/M2)
     Route: 065
     Dates: start: 201212
  2. RITUXIMAB [Suspect]
     Active Substance: RITUXIMAB
     Dosage: UNK (2 X 375 MG/M2)
     Route: 065
     Dates: start: 201204, end: 201207
  3. PREDNISOLONE [Suspect]
     Active Substance: PREDNISOLONE
     Indication: Autoinflammatory disease
     Route: 065
     Dates: start: 201110, end: 201202
  4. PREDNISONE [Suspect]
     Active Substance: PREDNISONE
     Indication: Autoinflammatory disease
     Dosage: 5 MILLIGRAM, BID
     Route: 065
     Dates: start: 201204, end: 201207
  5. INFLIXIMAB [Suspect]
     Active Substance: INFLIXIMAB
     Indication: Autoinflammatory disease
     Dosage: 10 MILLIGRAM/KILOGRAM, BIWEEKLY
     Route: 065
     Dates: start: 201208
  6. INFLIXIMAB [Suspect]
     Active Substance: INFLIXIMAB
     Dosage: 5 MILLIGRAM/KILOGRAM, BIWEEKLY
     Route: 065
     Dates: start: 201204, end: 201207
  7. METHYLPREDNISOLONE [Suspect]
     Active Substance: METHYLPREDNISOLONE
     Indication: Autoinflammatory disease
     Route: 065
     Dates: start: 201203
  8. METHYLPREDNISOLONE [Suspect]
     Active Substance: METHYLPREDNISOLONE
     Route: 065
     Dates: start: 201208

REACTIONS (4)
  - Failure to thrive [Unknown]
  - Iatrogenic injury [Unknown]
  - Drug ineffective [Unknown]
  - Growth disorder [Unknown]
